FAERS Safety Report 7998732 (Version 2)
Quarter: 2012Q4

REPORT INFORMATION
  Report Type: 
  Country: FR (occurrence: FR)
  Receive Date: 20110620
  Receipt Date: 20121010
  Transmission Date: 20130627
  Serious: Yes (Hospitalization)
  Sender: FDA-Public Use
  Company Number: FR-SANOFI-AVENTIS-2011SA036092

PATIENT
  Age: 52 Year
  Sex: Female

DRUGS (1)
  1. PLAQUENIL [Suspect]
     Indication: ARTHRALGIA MULTIPLE
     Route: 048
     Dates: start: 200808, end: 2011

REACTIONS (3)
  - Mitral valve incompetence [Not Recovered/Not Resolved]
  - Congestive cardiomyopathy [Not Recovered/Not Resolved]
  - Ejection fraction decreased [Not Recovered/Not Resolved]
